FAERS Safety Report 25574894 (Version 2)
Quarter: 2025Q3

REPORT INFORMATION
  Report Type: Spontaneous
  Country: EU (occurrence: EU)
  Receive Date: 20250718
  Receipt Date: 20250721
  Transmission Date: 20251021
  Serious: Yes (Hospitalization, Other)
  Sender: SANDOZ
  Company Number: EU-SANDOZ-SDZ2025BE050083

PATIENT
  Age: 41 Year
  Sex: Female

DRUGS (1)
  1. ACETAMINOPHEN [Suspect]
     Active Substance: ACETAMINOPHEN
     Indication: Product used for unknown indication
     Dosage: 12 G, QD FOR THE PAST 3 DAYS (2G, 6 TIMES PER DAY).
     Route: 065

REACTIONS (6)
  - Toxicity to various agents [Unknown]
  - Malaise [Unknown]
  - Abortion spontaneous [Unknown]
  - Hepatic enzyme increased [Unknown]
  - Overdose [Unknown]
  - Exposure during pregnancy [Unknown]
